FAERS Safety Report 13769987 (Version 1)
Quarter: 2017Q3

REPORT INFORMATION
  Report Type: Spontaneous
  Country: US (occurrence: US)
  Receive Date: 20170719
  Receipt Date: 20170719
  Transmission Date: 20171127
  Serious: Yes (Other)
  Sender: FDA-Public Use
  Company Number: US-MYLANLABS-2017M1042780

PATIENT

DRUGS (2)
  1. TRIAMCINOLONE [Suspect]
     Active Substance: TRIAMCINOLONE
     Indication: NEOVASCULAR AGE-RELATED MACULAR DEGENERATION
     Dosage: NUMEROUS INJECTIONS IN BOTH EYES
     Route: 031
  2. BEVACIZUMAB. [Suspect]
     Active Substance: BEVACIZUMAB
     Indication: NEOVASCULAR AGE-RELATED MACULAR DEGENERATION
     Dosage: NUMEROUS INJECTIONS IN BOTH EYES
     Route: 031

REACTIONS (2)
  - Ophthalmic herpes simplex [Recovered/Resolved]
  - Off label use [Recovered/Resolved]
